FAERS Safety Report 14080616 (Version 1)
Quarter: 2017Q4

REPORT INFORMATION
  Report Type: Spontaneous
  Country: US (occurrence: US)
  Receive Date: 20171012
  Receipt Date: 20171012
  Transmission Date: 20180321
  Serious: Yes (Hospitalization)
  Sender: FDA-Public Use
  Company Number: PHHY2017US147035

PATIENT
  Age: 64 Year
  Sex: Female

DRUGS (2)
  1. ENOXAPARIN [Suspect]
     Active Substance: ENOXAPARIN
     Indication: DEEP VEIN THROMBOSIS
  2. ENOXAPARIN [Suspect]
     Active Substance: ENOXAPARIN
     Indication: PULMONARY EMBOLISM
     Dosage: 1 MG/KG, BID
     Route: 065

REACTIONS (5)
  - Muscle haemorrhage [Unknown]
  - Areflexia [Unknown]
  - Neuropathy peripheral [Unknown]
  - Walking disability [Recovering/Resolving]
  - Hypotension [Unknown]
